FAERS Safety Report 15642772 (Version 1)
Quarter: 2018Q4

REPORT INFORMATION
  Report Type: Spontaneous
  Country: US (occurrence: US)
  Receive Date: 20181120
  Receipt Date: 20181120
  Transmission Date: 20190205
  Serious: No
  Sender: FDA-Public Use
  Company Number: None

PATIENT
  Age: 73 Year
  Sex: Female
  Weight: 69.75 kg

DRUGS (7)
  1. CPAP [Concomitant]
     Active Substance: DEVICE
  2. LEVOTHYROXIN [Concomitant]
     Active Substance: LEVOTHYROXINE
  3. MULTIVITAMIN [Concomitant]
     Active Substance: VITAMINS
  4. FLONASE [Concomitant]
     Active Substance: FLUTICASONE PROPIONATE
  5. GLUCOSAMINE CONDROITIN [Concomitant]
  6. LYRICA [Suspect]
     Active Substance: PREGABALIN
     Indication: NEUROPATHY PERIPHERAL
     Dosage: ?          QUANTITY:1 CAPSULE(S);?
     Route: 061
  7. RANETIDINE [Concomitant]

REACTIONS (4)
  - Wrong technique in product usage process [None]
  - Dizziness [None]
  - Drug intolerance [None]
  - Intentional product use issue [None]

NARRATIVE: CASE EVENT DATE: 20181001
